FAERS Safety Report 21628815 (Version 2)
Quarter: 2022Q4

REPORT INFORMATION
  Report Type: Spontaneous
  Country: RO (occurrence: RO)
  Receive Date: 20221122
  Receipt Date: 20221202
  Transmission Date: 20230113
  Serious: Yes (Death, Other)
  Sender: FDA-Public Use
  Company Number: RO-SA-SAC20221122000445

PATIENT
  Age: 66 Year
  Sex: Male

DRUGS (1)
  1. FABRAZYME [Suspect]
     Active Substance: AGALSIDASE BETA
     Indication: Fabry^s disease
     Dosage: UNK UNK, QOW
     Dates: end: 20221021

REACTIONS (3)
  - Sudden death [Fatal]
  - Cerebrovascular accident [Unknown]
  - Cardiovascular disorder [Unknown]
